FAERS Safety Report 26121770 (Version 1)
Quarter: 2025Q4

REPORT INFORMATION
  Report Type: Spontaneous
  Country: US (occurrence: None)
  Receive Date: 20251204
  Receipt Date: 20251204
  Transmission Date: 20260118
  Serious: Yes (Death)
  Sender: FDA-CTU
  Company Number: None

PATIENT
  Age: 64 Year
  Sex: Male

DRUGS (1)
  1. NUBEQA [Suspect]
     Active Substance: DAROLUTAMIDE
     Indication: Prostate cancer
     Dosage: 600 MG TWICE A DAY ORAL ?
     Route: 048
     Dates: start: 20240905

REACTIONS (4)
  - Accidental death [None]
  - Completed suicide [None]
  - Alcohol use [None]
  - Depression [None]

NARRATIVE: CASE EVENT DATE: 20251019
